FAERS Safety Report 8381202-9 (Version None)
Quarter: 2012Q2

REPORT INFORMATION
  Report Type: 
  Country: None (occurrence: None)
  Receive Date: 20120523
  Receipt Date: 20120511
  Transmission Date: 20120825
  Serious: Yes (Hospitalization, Other)
  Sender: FDA-Public Use
  Company Number: US-ELI_LILLY_AND_COMPANY-US201205005144

PATIENT
  Sex: Female

DRUGS (5)
  1. TEMODAR [Concomitant]
     Dosage: 200 MG, EACH EVENING
  2. DILANTIN [Concomitant]
     Dosage: 100 MG, TID
  3. FORTEO [Suspect]
     Indication: OSTEOPOROSIS
     Dosage: 20 UG, UNK
  4. VICODIN [Concomitant]
     Indication: HEADACHE
     Dosage: UNK
  5. KYTRIL [Concomitant]
     Dosage: UNK, EACH EVENING

REACTIONS (6)
  - BRAIN OEDEMA [None]
  - BALANCE DISORDER [None]
  - GLIOBLASTOMA [None]
  - DECREASED ACTIVITY [None]
  - MALAISE [None]
  - INTENTIONAL DRUG MISUSE [None]
